FAERS Safety Report 21239040 (Version 2)
Quarter: 2022Q4

REPORT INFORMATION
  Report Type: Report from Study
  Country: US (occurrence: US)
  Receive Date: 20220822
  Receipt Date: 20221028
  Transmission Date: 20230112
  Serious: Yes (Disabling, Other)
  Sender: FDA-Public Use
  Company Number: US-ABBVIE-22K-163-4511594-00

PATIENT
  Age: 27 Year
  Sex: Female
  Weight: 82.553 kg

DRUGS (11)
  1. HUMIRA [Suspect]
     Active Substance: ADALIMUMAB
     Indication: Hidradenitis
     Route: 058
     Dates: start: 202111, end: 202208
  2. HUMIRA [Suspect]
     Active Substance: ADALIMUMAB
     Dosage: CITRATE FREE
     Route: 058
  3. HUMIRA [Suspect]
     Active Substance: ADALIMUMAB
     Dosage: 80MG/0.8ML
     Dates: start: 202009
  4. FERROUS SULFATE [Concomitant]
     Active Substance: FERROUS SULFATE
     Indication: Mineral supplementation
     Dosage: 325MG
  5. PFIZER-BIONTECH COVID-19 VACCINE [Concomitant]
     Active Substance: TOZINAMERAN
     Indication: COVID-19 immunisation
     Dosage: PFIZER?1 IN ONCE
     Route: 030
     Dates: start: 202210, end: 202210
  6. TRAZODONE HCL [Concomitant]
     Active Substance: TRAZODONE HYDROCHLORIDE
     Indication: Bipolar disorder
     Dosage: 100 MG
  7. SYMBICORT [Concomitant]
     Active Substance: BUDESONIDE\FORMOTEROL FUMARATE DIHYDRATE
     Indication: Product used for unknown indication
     Dosage: 2PACKS AM, 2PACKS PM EVERYDAY
  8. SLYND [Concomitant]
     Active Substance: DROSPIRENONE
     Indication: Oral contraception
  9. SINGULAIR [Concomitant]
     Active Substance: MONTELUKAST SODIUM
     Indication: Hypersensitivity
  10. TRILEPTAL [Concomitant]
     Active Substance: OXCARBAZEPINE
     Indication: Bipolar disorder
  11. DOXYCYCLINE [Concomitant]
     Active Substance: DOXYCYCLINE
     Indication: Cyst
     Dosage: 100MG

REACTIONS (3)
  - Gastric cyst [Recovering/Resolving]
  - Abdominal adhesions [Recovering/Resolving]
  - Infected cyst [Recovering/Resolving]

NARRATIVE: CASE EVENT DATE: 20220801
